FAERS Safety Report 18705786 (Version 1)
Quarter: 2021Q1

REPORT INFORMATION
  Report Type: Spontaneous
  Country: US (occurrence: US)
  Receive Date: 20210105
  Receipt Date: 20210105
  Transmission Date: 20210419
  Serious: Yes (Hospitalization)
  Sender: FDA-Public Use
  Company Number: None

PATIENT
  Sex: Male

DRUGS (15)
  1. FOLIC ACID. [Concomitant]
     Active Substance: FOLIC ACID
  2. VICTOZA [Concomitant]
     Active Substance: LIRAGLUTIDE
  3. BUMETANIDE. [Concomitant]
     Active Substance: BUMETANIDE
  4. ENALAPRIL [Concomitant]
     Active Substance: ENALAPRIL
  5. ATORVASTATIN [Concomitant]
     Active Substance: ATORVASTATIN
  6. FAMOTIDINE. [Concomitant]
     Active Substance: FAMOTIDINE
  7. METFORMIN [Concomitant]
     Active Substance: METFORMIN HYDROCHLORIDE
  8. RIFAXMIN [Concomitant]
  9. XIFAXAN [Suspect]
     Active Substance: RIFAXIMIN
     Indication: PRODUCT USED FOR UNKNOWN INDICATION
     Route: 048
     Dates: start: 20201203
  10. GABAPENTIN. [Suspect]
     Active Substance: GABAPENTIN
  11. GABAPENTIN. [Concomitant]
     Active Substance: GABAPENTIN
  12. LACTULOSE. [Concomitant]
     Active Substance: LACTULOSE
  13. PANOPRAZOLE [Concomitant]
  14. GLIPIZIDE. [Concomitant]
     Active Substance: GLIPIZIDE
  15. TRAZODONE [Concomitant]
     Active Substance: TRAZODONE HYDROCHLORIDE

REACTIONS (6)
  - Skin discolouration [None]
  - Peripheral swelling [None]
  - Pain in extremity [None]
  - Paraesthesia [None]
  - Insomnia [None]
  - Blood glucose increased [None]
